FAERS Safety Report 20622881 (Version 1)
Quarter: 2022Q1

REPORT INFORMATION
  Report Type: Spontaneous
  Country: CN (occurrence: CN)
  Receive Date: 20220322
  Receipt Date: 20220322
  Transmission Date: 20220424
  Serious: Yes (Other)
  Sender: FDA-Public Use
  Company Number: CN-BAXTER-2022BAX006153

PATIENT
  Age: 52 Year
  Sex: Female
  Weight: 76 kg

DRUGS (12)
  1. CYCLOPHOSPHAMIDE [Suspect]
     Active Substance: CYCLOPHOSPHAMIDE
     Indication: Breast cancer female
     Dosage: 1-2 CHEMOTHERAPY: ENDOXAN CTX + NS
     Route: 042
  2. CYCLOPHOSPHAMIDE [Suspect]
     Active Substance: CYCLOPHOSPHAMIDE
     Dosage: 3RD CHEMOTHERAPY: ENDOXAN CTX (1070 MG) + NS (55 ML)
     Route: 042
     Dates: start: 20220120, end: 20220120
  3. CYCLOPHOSPHAMIDE [Suspect]
     Active Substance: CYCLOPHOSPHAMIDE
     Dosage: DOSE RE-INTRODUCED: ENDOXAN CTX +NS
     Route: 042
  4. SODIUM CHLORIDE [Suspect]
     Active Substance: SODIUM CHLORIDE
     Indication: Medication dilution
     Dosage: 1-2 CHEMOTHERAPY: ENDOXAN CTX +NS
     Route: 042
  5. SODIUM CHLORIDE [Suspect]
     Active Substance: SODIUM CHLORIDE
     Dosage: 1-2 CHEMOTHERAPY: HUIYU +NS
     Route: 041
  6. SODIUM CHLORIDE [Suspect]
     Active Substance: SODIUM CHLORIDE
     Dosage: 3RD CHEMOTHERAPY: ENDOXAN CTX) (1070 MG) + NS (55 ML)
     Route: 042
     Dates: start: 20220120, end: 20220120
  7. SODIUM CHLORIDE [Suspect]
     Active Substance: SODIUM CHLORIDE
     Dosage: 3RD CHEMOTHERAPY: HUIYU (134 MG) + NS (250 ML)
     Route: 041
     Dates: start: 20220120, end: 20220120
  8. SODIUM CHLORIDE [Suspect]
     Active Substance: SODIUM CHLORIDE
     Dosage: DOSE RE-INTRODUCED: ENDOXAN CTX +NS
     Route: 042
  9. SODIUM CHLORIDE [Suspect]
     Active Substance: SODIUM CHLORIDE
     Dosage: DOSE RE-INTRODUCED: HUIYU + NS
     Route: 041
  10. DOCETAXEL [Suspect]
     Active Substance: DOCETAXEL
     Indication: Breast cancer female
     Dosage: 1-2 CHEMOTHERAPY: HUIYU +NS
     Route: 041
  11. DOCETAXEL [Suspect]
     Active Substance: DOCETAXEL
     Dosage: 3RD CHEMOTHERAPY: HUIYU (134 MG) + NS (250 ML)
     Route: 041
     Dates: start: 20220120, end: 20220120
  12. DOCETAXEL [Suspect]
     Active Substance: DOCETAXEL
     Dosage: DOSE RE-INTRODUCED: HUIYU +NS
     Route: 041

REACTIONS (2)
  - White blood cell count decreased [Recovered/Resolved]
  - Agranulocytosis [Recovered/Resolved]

NARRATIVE: CASE EVENT DATE: 20220126
